FAERS Safety Report 12852104 (Version 1)
Quarter: 2016Q4

REPORT INFORMATION
  Report Type: Spontaneous
  Country: SA (occurrence: SA)
  Receive Date: 20161017
  Receipt Date: 20161017
  Transmission Date: 20170207
  Serious: Yes (Hospitalization)
  Sender: FDA-Public Use
  Company Number: SA-ASTRAZENECA-2016SF07980

PATIENT
  Age: 47 Year
  Sex: Female

DRUGS (2)
  1. ONGLYZA [Suspect]
     Active Substance: SAXAGLIPTIN HYDROCHLORIDE
     Indication: TYPE 2 DIABETES MELLITUS
     Route: 048
  2. DIAMICRON [Concomitant]
     Active Substance: GLICLAZIDE

REACTIONS (1)
  - Cholecystitis [Unknown]
